FAERS Safety Report 8356800-9 (Version None)
Quarter: 2012Q2

REPORT INFORMATION
  Report Type: 
  Country: None (occurrence: None)
  Receive Date: 20120514
  Receipt Date: 20120510
  Transmission Date: 20120825
  Serious: No
  Sender: FDA-Public Use
  Company Number: US-PFIZER INC-2012114751

PATIENT
  Sex: Male
  Weight: 80 kg

DRUGS (11)
  1. PRAVASTATIN [Concomitant]
     Indication: BLOOD CHOLESTEROL INCREASED
     Dosage: UNK
  2. TRAZODONE [Concomitant]
     Indication: SLEEP DISORDER
     Dosage: UNK
  3. BACLOFEN [Concomitant]
     Dosage: UNK
  4. LASIX [Concomitant]
     Dosage: UNK
  5. CHANTIX [Suspect]
     Indication: SMOKING CESSATION THERAPY
     Dosage: 0.5 MG, 1X/DAY
     Route: 048
     Dates: start: 20120401, end: 20120401
  6. CHANTIX [Suspect]
     Dosage: 1 MG, 2X/DAY
     Route: 048
     Dates: start: 20120401
  7. KLOR-CON [Concomitant]
     Dosage: UNK
  8. VITAMIN B1 TAB [Concomitant]
     Dosage: UNK
  9. GABAPENTIN [Concomitant]
     Indication: PAIN
     Dosage: UNK
  10. PRAZOSIN [Concomitant]
     Indication: INCONTINENCE
     Dosage: UNK
  11. METOPROLOL [Concomitant]
     Dosage: UNK

REACTIONS (2)
  - DIZZINESS [None]
  - INSOMNIA [None]
